FAERS Safety Report 14478147 (Version 2)
Quarter: 2018Q2

REPORT INFORMATION
  Report Type: Report from Study
  Country: IT (occurrence: IT)
  Receive Date: 20180202
  Receipt Date: 20180613
  Transmission Date: 20180711
  Serious: Yes (Hospitalization)
  Sender: FDA-Public Use
  Company Number: IT-CIPLA LTD.-2017IT12169

PATIENT

DRUGS (9)
  1. CARBOPLATIN. [Suspect]
     Active Substance: CARBOPLATIN
     Dosage: AUC 4, ON DAY 1, EVERY EVERY 21 DAYS, IN 500 CC SALINE SOLUTION OVER 1 HOUR
     Route: 042
  2. VITAMIN B12 [Concomitant]
     Active Substance: CYANOCOBALAMIN
     Indication: PREMEDICATION
     Dosage: UNK, 15 MIN BEFORE THE CHEMOTHERAPY OF DAYS 1 AND 8
     Route: 042
  3. ONDANSETRON [Concomitant]
     Active Substance: ONDANSETRON
     Indication: PREMEDICATION
     Dosage: 8 MG, 15 MIN BEFORE THE CHEMOTHERAPY OF DAYS 1 AND 8
     Route: 042
  4. RANITIDINE. [Concomitant]
     Active Substance: RANITIDINE
     Indication: PREMEDICATION
     Dosage: 8 MG, 15 MIN BEFORE THE CHEMOTHERAPY OF DAYS 1 AND 8
     Route: 042
  5. PEMETREXED. [Suspect]
     Active Substance: PEMETREXED
     Indication: LUNG ADENOCARCINOMA STAGE III
     Dosage: 500 MG/M2, ON DAY 1 OF EVERY 21 DAY CYCLE, IN 150 CC SALINE SOLUTION OVER 15 MIN
     Route: 042
  6. PEMETREXED. [Suspect]
     Active Substance: PEMETREXED
     Dosage: UNK, 75% OF THE FULL DOSE
     Route: 042
  7. DEXAMETHASONE. [Concomitant]
     Active Substance: DEXAMETHASONE
     Indication: PREMEDICATION
     Dosage: 8 MG, 15 MIN BEFORE THE CHEMOTHERAPY OF DAYS 1 AND 8
     Route: 042
  8. CARBOPLATIN. [Suspect]
     Active Substance: CARBOPLATIN
     Indication: LUNG ADENOCARCINOMA STAGE III
     Dosage: AUC 5, ON DAY 1, EVERY EVERY 21 DAYS, IN 500 CC SALINE SOLUTION OVER 1 HOUR
     Route: 042
  9. FOLIC ACID. [Concomitant]
     Active Substance: FOLIC ACID
     Indication: PREMEDICATION
     Dosage: UNK, 15 MIN BEFORE THE CHEMOTHERAPY OF DAYS 1 AND 8
     Route: 042

REACTIONS (1)
  - Pneumonia [Unknown]
